FAERS Safety Report 11202688 (Version 1)
Quarter: 2015Q2

REPORT INFORMATION
  Report Type: Spontaneous
  Country: US (occurrence: None)
  Receive Date: 20150618
  Receipt Date: 20150618
  Transmission Date: 20150821
  Serious: Yes (Hospitalization)
  Sender: FDA-Public Use
  Company Number: None

PATIENT
  Age: 66 Year
  Sex: Male
  Weight: 110.6 kg

DRUGS (1)
  1. AZITHROMYCIN [Suspect]
     Active Substance: AZITHROMYCIN ANHYDROUS
     Route: 048
     Dates: start: 20150403, end: 20150408

REACTIONS (4)
  - Chest discomfort [None]
  - Rash maculo-papular [None]
  - Rash pruritic [None]
  - Wheezing [None]

NARRATIVE: CASE EVENT DATE: 20150413
